FAERS Safety Report 20821266 (Version 1)
Quarter: 2022Q2

REPORT INFORMATION
  Report Type: Spontaneous
  Country: US (occurrence: US)
  Receive Date: 20220512
  Receipt Date: 20220512
  Transmission Date: 20220721
  Serious: No
  Sender: FDA-Public Use
  Company Number: US-PFIZER INC-202200683399

PATIENT
  Age: 49 Year
  Sex: Male

DRUGS (5)
  1. PAXLOVID [Suspect]
     Active Substance: NIRMATRELVIR\RITONAVIR
     Indication: COVID-19 treatment
     Dosage: UNK
     Dates: start: 20220428, end: 20220503
  2. HYDROCHLOROTHIAZIDE [Concomitant]
     Active Substance: HYDROCHLOROTHIAZIDE
     Dosage: UNK
     Dates: start: 20180101
  3. METOPROLOL TARTRATE [Concomitant]
     Active Substance: METOPROLOL TARTRATE
     Dosage: UNK
     Dates: start: 20180101
  4. ROSUVASTATIN [Concomitant]
     Active Substance: ROSUVASTATIN
     Dosage: UNK
     Dates: start: 20180101, end: 20220427
  5. ASPIRIN [Concomitant]
     Active Substance: ASPIRIN
     Dosage: 81 MG
     Dates: start: 20180101

REACTIONS (3)
  - SARS-CoV-2 test positive [Unknown]
  - Rhinorrhoea [Unknown]
  - Symptom recurrence [Unknown]

NARRATIVE: CASE EVENT DATE: 20220505
